FAERS Safety Report 24353577 (Version 1)
Quarter: 2024Q3

REPORT INFORMATION
  Report Type: Spontaneous
  Country: RU (occurrence: RU)
  Receive Date: 20240923
  Receipt Date: 20240923
  Transmission Date: 20241017
  Serious: No
  Sender: ROCHE
  Company Number: RU-ROCHE-3451963

PATIENT
  Sex: Male

DRUGS (10)
  1. TRASTUZUMAB [Suspect]
     Active Substance: TRASTUZUMAB
     Indication: Gastric cancer
     Dosage: ON DAY 1, CYCLE 21 DAYS
     Route: 065
  2. TRASTUZUMAB [Suspect]
     Active Substance: TRASTUZUMAB
     Dosage: ON DAY 1, CYCLE 21 DAYS
     Route: 065
  3. LIPIODOL [Suspect]
     Active Substance: ETHIODIZED OIL
     Indication: Gastric cancer
     Route: 065
     Dates: start: 20200807
  4. CISPLATIN [Suspect]
     Active Substance: CISPLATIN
     Indication: Gastric cancer
     Route: 065
     Dates: start: 20200807
  5. PACLITAXEL [Suspect]
     Active Substance: PACLITAXEL
     Indication: Gastric cancer
     Dosage: ON DAY 1
     Route: 065
  6. NIVOLUMAB [Suspect]
     Active Substance: NIVOLUMAB
     Indication: Gastric cancer
     Route: 042
  7. OXALIPLATIN [Concomitant]
     Active Substance: OXALIPLATIN
  8. OXALIPLATIN [Concomitant]
     Active Substance: OXALIPLATIN
     Dates: start: 20200505
  9. FLUOROURACIL [Concomitant]
     Active Substance: FLUOROURACIL
     Dates: start: 20200505
  10. LIPIODOL [Concomitant]
     Active Substance: ETHIODIZED OIL
     Dates: start: 20200505

REACTIONS (5)
  - Disease progression [Unknown]
  - Pruritus [Unknown]
  - Erythema [Unknown]
  - Diarrhoea [Unknown]
  - Nausea [Unknown]
